FAERS Safety Report 18473508 (Version 1)
Quarter: 2020Q4

REPORT INFORMATION
  Report Type: Spontaneous
  Country: DE (occurrence: DE)
  Receive Date: 20201106
  Receipt Date: 20201106
  Transmission Date: 20210114
  Serious: Yes (Hospitalization, Other)
  Sender: FDA-Public Use
  Company Number: DE-PFIZER INC-2020430534

PATIENT
  Age: 15 Year
  Sex: Female
  Weight: 45 kg

DRUGS (3)
  1. IBUPROFEN. [Suspect]
     Active Substance: IBUPROFEN
     Indication: SUICIDAL IDEATION
     Dosage: DAILY DOSE: 2 DF DOSAGE FORM EVERY TOTAL
     Route: 048
     Dates: start: 20200220
  2. INTUNIV [Suspect]
     Active Substance: GUANFACINE HYDROCHLORIDE
     Indication: SUICIDAL IDEATION
     Dosage: 2 MG, SINGLE; FREQ:26 {TOTAL};DAILY DOSE: 2 MG MILLGRAM(S) EVERY 26 TOTAL
     Route: 048
     Dates: start: 20200220
  3. ZONISAMIDE. [Suspect]
     Active Substance: ZONISAMIDE
     Indication: SUICIDAL IDEATION
     Dosage: 100 MG, SINGLE; FREQ:39 {TOTAL};DAILY DOSE: 100 MG MILLGRAM(S) EVERY 39 TOTAL
     Route: 048
     Dates: start: 20200220

REACTIONS (9)
  - Intentional overdose [Recovered/Resolved]
  - Metabolic acidosis [Recovered/Resolved]
  - Somnolence [Recovered/Resolved]
  - Hypotension [Recovered/Resolved]
  - Hypokalaemia [Recovered/Resolved]
  - Vomiting [Recovered/Resolved]
  - Suicidal ideation [Recovered/Resolved]
  - Sinus arrhythmia [Recovered/Resolved]
  - Bradycardia [Recovered/Resolved]

NARRATIVE: CASE EVENT DATE: 20200220
